FAERS Safety Report 4337852-X (Version None)
Quarter: 2004Q1

REPORT INFORMATION
  Report Type: 
  Country: None (occurrence: None)
  Receive Date: 20040326
  Receipt Date: 20031120
  Transmission Date: 20041129
  Serious: Yes (Hospitalization)
  Sender: FDA-Public Use
  Company Number: 2003UW15305

PATIENT
  Age: 42 Year
  Sex: Male

DRUGS (7)
  1. ZESTRIL [Suspect]
     Indication: HYPERTENSION
     Dosage: 2.5 MG PO
     Route: 048
     Dates: start: 20031011, end: 20031014
  2. ZESTRIL [Suspect]
     Indication: MYOCARDIAL INFARCTION
     Dosage: 2.5 MG PO
     Route: 048
     Dates: start: 20031011, end: 20031014
  3. METOPROLOL [Concomitant]
  4. SIMVASTATIN [Concomitant]
  5. ASPIRIN [Concomitant]
  6. ACETAMINOPHEN [Concomitant]
  7. CANDESARTAN [Concomitant]

REACTIONS (1)
  - RASH [None]
